FAERS Safety Report 12953868 (Version 11)
Quarter: 2017Q2

REPORT INFORMATION
  Report Type: Report from Study
  Country: GB (occurrence: GB)
  Receive Date: 20161118
  Receipt Date: 20170529
  Transmission Date: 20170830
  Serious: Yes (Death, Life-Threatening, Hospitalization, Other)
  Sender: FDA-Public Use
  Company Number: GB-BRISTOL-MYERS SQUIBB COMPANY-BMS-2016-094774

PATIENT
  Age: 60 Year
  Sex: Male
  Weight: 100 kg

DRUGS (12)
  1. NIVOLUMAB [Suspect]
     Active Substance: NIVOLUMAB
     Indication: MALIGNANT MELANOMA
     Dosage: 1 DF, UNK
     Route: 065
     Dates: start: 20161026, end: 20161026
  2. TAZOCIN [Concomitant]
     Active Substance: PIPERACILLIN SODIUM\TAZOBACTAM SODIUM
     Indication: INFECTION
     Dosage: 13.5 MG, UNK
     Route: 042
     Dates: start: 20161015, end: 20161019
  3. PARACETAMOL [Concomitant]
     Active Substance: ACETAMINOPHEN
     Indication: CHEST PAIN
     Dosage: 1 G, PRN
     Route: 048
     Dates: start: 20161005
  4. ALTEPLASE [Concomitant]
     Active Substance: ALTEPLASE
     Indication: PLEURODESIS
     Dosage: 5 MG, UNK
     Route: 042
     Dates: start: 20161021, end: 20161023
  5. DIHYDROCODEINE [Concomitant]
     Active Substance: DIHYDROCODEINE
     Indication: CHEST PAIN
     Dosage: 240 MG, UNK
     Route: 048
     Dates: start: 20161006
  6. MEROPENEM. [Concomitant]
     Active Substance: MEROPENEM
     Indication: PRODUCT USED FOR UNKNOWN INDICATION
     Dosage: 1 G, UNK
     Route: 042
     Dates: start: 20161020, end: 20161027
  7. SENNA ALEXANDRINA [Concomitant]
     Active Substance: SENNA LEAF
     Indication: CONSTIPATION PROPHYLAXIS
     Dosage: 2 TAB, PRN
     Route: 048
     Dates: start: 20161006
  8. DALTEPARIN [Concomitant]
     Active Substance: DALTEPARIN
     Indication: THROMBOSIS PROPHYLAXIS
     Dosage: 5000 U, UNK
     Route: 058
     Dates: start: 20161005
  9. DORNASE ALFA [Concomitant]
     Active Substance: DORNASE ALFA
     Indication: PROPHYLAXIS
     Dosage: 5 MG, UNK
     Route: 065
     Dates: start: 20161021, end: 20161023
  10. IPILIMUMAB [Suspect]
     Active Substance: IPILIMUMAB
     Indication: MALIGNANT MELANOMA
     Dosage: 1 DF, UNK
     Route: 065
     Dates: start: 20161026, end: 20161026
  11. LIDOCAINE. [Concomitant]
     Active Substance: LIDOCAINE
     Indication: PLEURODESIS
     Dosage: 1 ML, UNK
     Route: 058
     Dates: start: 20161024, end: 20161024
  12. ORAMORPH [Concomitant]
     Active Substance: MORPHINE SULFATE
     Indication: CHEST PAIN
     Dosage: 10 MG, UNK
     Route: 048
     Dates: start: 20161006

REACTIONS (2)
  - Acute kidney injury [Fatal]
  - Pleural effusion [Not Recovered/Not Resolved]

NARRATIVE: CASE EVENT DATE: 20161101
